FAERS Safety Report 8974189 (Version 1)
Quarter: 2012Q4

REPORT INFORMATION
  Report Type: Spontaneous
  Country: IT (occurrence: None)
  Receive Date: 20121211
  Receipt Date: 20121211
  Transmission Date: 20130627
  Serious: Yes (Death)
  Sender: FDA-Public Use
  Company Number: DSA_61164_2012

PATIENT

DRUGS (4)
  1. FLUOROURACIL [Suspect]
     Indication: COLORECTAL CANCER METASTATIC
     Dosage: 400 MG/M2 EVERY OTHER WEEK INTRAVENOUS BOLUS), (600 MG/M2; EVERY OTHER WEEK INTRAVENOUS (NOT OTHERWISE SPECIFIED))
     Route: 040
  2. IRINOTECAN (IRINOTECAN) [Suspect]
     Indication: COLORECTAL CANCER METASTATIC
  3. LEUCOVORIN [Suspect]
     Indication: COLORECTAL CANCER METASTATIC
     Route: 042
  4. BEVACIZUMAB [Suspect]
     Indication: COLORECTAL CANCER METASTATIC
     Route: 042

REACTIONS (2)
  - Myocardial infarction [None]
  - Cardiac arrest [None]
